FAERS Safety Report 7909692-3 (Version None)
Quarter: 2011Q4

REPORT INFORMATION
  Report Type: 
  Country: None (occurrence: None)
  Receive Date: 20111111
  Receipt Date: 20111108
  Transmission Date: 20120403
  Serious: Yes (Death)
  Sender: FDA-Public Use
  Company Number: RU-GLAXOSMITHKLINE-B0761475A

PATIENT
  Age: 19 Year
  Sex: Male

DRUGS (1)
  1. ATRIANCE [Suspect]
     Indication: ADULT T-CELL LYMPHOMA/LEUKAEMIA REFRACTORY
     Route: 065
     Dates: start: 20110801

REACTIONS (2)
  - DISEASE PROGRESSION [None]
  - ADULT T-CELL LYMPHOMA/LEUKAEMIA REFRACTORY [None]
